FAERS Safety Report 18152507 (Version 1)
Quarter: 2020Q3

REPORT INFORMATION
  Report Type: Report from Study
  Country: MX (occurrence: MX)
  Receive Date: 20200814
  Receipt Date: 20200814
  Transmission Date: 20201103
  Serious: Yes (Death, Hospitalization, Other)
  Sender: FDA-Public Use
  Company Number: MX-ASTRAZENECA-2020SE81413

PATIENT
  Age: 23245 Day
  Sex: Female
  Weight: 74 kg

DRUGS (2)
  1. LYNPARZA [Suspect]
     Active Substance: OLAPARIB
     Dosage: 150.0MG UNKNOWN
     Route: 048
     Dates: start: 20200624
  2. LYNPARZA [Suspect]
     Active Substance: OLAPARIB
     Dosage: 100.0MG UNKNOWN
     Route: 048

REACTIONS (6)
  - Decreased appetite [Recovering/Resolving]
  - Polyneuropathy [Unknown]
  - Death [Fatal]
  - Asthenia [Recovering/Resolving]
  - Disease progression [Unknown]
  - Anaemia [Recovering/Resolving]

NARRATIVE: CASE EVENT DATE: 20200808
